FAERS Safety Report 5986099-X (Version None)
Quarter: 2008Q4

REPORT INFORMATION
  Report Type: 
  Country: None (occurrence: None)
  Receive Date: 20081209
  Receipt Date: 20080403
  Transmission Date: 20090506
  Serious: No
  Sender: FDA-Public Use
  Company Number: US-AMGEN-KDL271421

PATIENT
  Sex: Female

DRUGS (2)
  1. ENBREL [Suspect]
     Indication: RHEUMATOID ARTHRITIS
     Route: 058
     Dates: start: 19991226, end: 20071201
  2. METHOTREXATE [Concomitant]
     Dates: start: 20030910

REACTIONS (3)
  - FATIGUE [None]
  - PAIN [None]
  - THERAPEUTIC RESPONSE DECREASED [None]
